FAERS Safety Report 12816416 (Version 1)
Quarter: 2016Q4

REPORT INFORMATION
  Report Type: Spontaneous
  Country: US (occurrence: US)
  Receive Date: 20161006
  Receipt Date: 20161006
  Transmission Date: 20170207
  Serious: No
  Sender: FDA-Public Use
  Company Number: US-NOVEN PHARMACEUTICALS, INC.-US2015000822

PATIENT
  Age: 52 Year
  Sex: Female

DRUGS (1)
  1. COMBIPATCH [Suspect]
     Active Substance: ESTRADIOL\NORETHINDRONE ACETATE
     Indication: HORMONE REPLACEMENT THERAPY
     Dosage: UNK, UNKNOWN
     Route: 062

REACTIONS (5)
  - Menstrual disorder [Unknown]
  - Mood swings [Unknown]
  - Hot flush [Unknown]
  - Muscle spasms [Unknown]
  - Abdominal distension [Unknown]
